FAERS Safety Report 9626904 (Version 2)
Quarter: 2013Q4

REPORT INFORMATION
  Report Type: Report from Study
  Country: JP (occurrence: JP)
  Receive Date: 20131016
  Receipt Date: 20131016
  Transmission Date: 20140711
  Serious: Yes (Hospitalization)
  Sender: FDA-Public Use
  Company Number: JP-TAKEDA-TCI2013A00359

PATIENT
  Age: 62 Year
  Sex: Male
  Weight: 58 kg

DRUGS (33)
  1. LANSOPRAZOLE [Suspect]
     Indication: PROPHYLAXIS AGAINST GASTROINTESTINAL ULCER
     Dosage: 20 MG, QD
     Route: 048
     Dates: start: 20120508
  2. LANSOPRAZOLE [Suspect]
     Dosage: 20 MG, QD
     Dates: start: 20111117, end: 20120507
  3. MOBIC [Concomitant]
     Indication: PAIN MANAGEMENT
     Route: 048
     Dates: start: 20080519
  4. MOBIC [Concomitant]
     Indication: PAIN MANAGEMENT
  5. BIOFERMIN R [Concomitant]
     Indication: GASTROINTESTINAL DISORDER
     Route: 048
     Dates: start: 20070511
  6. BIOFERMIN R [Concomitant]
     Indication: GASTROINTESTINAL DISORDER
  7. MYSLEE [Concomitant]
     Indication: INSOMNIA
     Route: 048
     Dates: start: 20071207
  8. DAIKENTYUTO [Concomitant]
     Indication: DYSPEPSIA
     Route: 048
     Dates: start: 20070928
  9. ALDACTONE-A [Concomitant]
     Indication: CARDIAC FAILURE CHRONIC
     Route: 048
     Dates: start: 20110819
  10. ALDACTONE-A [Concomitant]
     Indication: CARDIAC FAILURE CHRONIC
  11. LASIX                              /00032601/ [Concomitant]
     Indication: CARDIAC FAILURE CHRONIC
     Route: 048
     Dates: start: 20090803, end: 20130128
  12. LASIX                              /00032601/ [Concomitant]
     Indication: CARDIAC FAILURE CHRONIC
     Route: 048
  13. LASIX                              /00032601/ [Concomitant]
     Route: 048
     Dates: start: 20130129
  14. RESTAMIN CORTISONE [Concomitant]
     Indication: PRURITUS
     Route: 062
     Dates: start: 20100104
  15. RESTAMIN CORTISONE [Concomitant]
     Indication: PRURITUS
  16. HANGE-SHASHIN-TO [Concomitant]
     Indication: DYSPEPSIA
     Route: 048
     Dates: start: 20110114
  17. WARFARIN [Concomitant]
     Indication: THROMBOSIS PROPHYLAXIS
     Route: 048
     Dates: start: 20130111
  18. WARFARIN [Concomitant]
     Indication: THROMBOSIS PROPHYLAXIS
  19. UBRETID [Concomitant]
     Indication: BENIGN PROSTATIC HYPERPLASIA
     Route: 048
     Dates: start: 20100405
  20. UBRETID [Concomitant]
     Indication: BENIGN PROSTATIC HYPERPLASIA
  21. FLIVAS [Concomitant]
     Indication: BENIGN PROSTATIC HYPERPLASIA
     Route: 048
     Dates: start: 20110415
  22. FLIVAS [Concomitant]
     Indication: BENIGN PROSTATIC HYPERPLASIA
  23. SAIREI-TO [Concomitant]
     Indication: BENIGN PROSTATIC HYPERPLASIA
     Route: 048
     Dates: start: 20071207
  24. SAIREI-TO [Concomitant]
     Indication: BENIGN PROSTATIC HYPERPLASIA
  25. PL GRAN. [Concomitant]
     Indication: NASOPHARYNGITIS
     Route: 048
     Dates: start: 20130111
  26. PL GRAN. [Concomitant]
     Indication: NASOPHARYNGITIS
  27. PURSENNID                          /00571902/ [Concomitant]
     Indication: CONSTIPATION
     Route: 048
     Dates: start: 20120706
  28. MOHRUS TAPE [Concomitant]
     Indication: PAIN MANAGEMENT
     Route: 062
     Dates: start: 20130111
  29. MOHRUS TAPE [Concomitant]
     Indication: PAIN MANAGEMENT
  30. MUCOSOLVAN [Concomitant]
     Indication: NASOPHARYNGITIS
     Route: 048
     Dates: start: 20130111
  31. MUCOSOLVAN [Concomitant]
     Indication: NASOPHARYNGITIS
  32. ZYRTEC [Concomitant]
     Indication: PRURITUS
     Route: 048
     Dates: start: 20071207
  33. ZYRTEC [Concomitant]
     Indication: PRURITUS

REACTIONS (1)
  - Cardiac failure chronic [Recovered/Resolved]
